FAERS Safety Report 7174599-9 (Version None)
Quarter: 2010Q4

REPORT INFORMATION
  Report Type: 
  Country: None (occurrence: None)
  Receive Date: 20101219
  Receipt Date: 20100402
  Transmission Date: 20110411
  Serious: No
  Sender: FDA-Public Use
  Company Number: US-AMGEN-KDL403560

PATIENT

DRUGS (5)
  1. ENBREL [Suspect]
     Indication: PRODUCT USED FOR UNKNOWN INDICATION
     Dosage: 50 MG, QWK
     Route: 058
  2. XALATAN [Concomitant]
     Dosage: .005 %, UNK
  3. BRIMONIDINE TARTRATE [Concomitant]
     Dosage: .5 %, UNK
  4. UNSPECIFIED OPHTHALMIC PREPARATION [Concomitant]
     Dosage: .1 %, UNK
  5. BRINZOLAMIDE [Concomitant]
     Dosage: 1 %, UNK

REACTIONS (1)
  - MUSCULAR WEAKNESS [None]
